FAERS Safety Report 22133820 (Version 2)
Quarter: 2024Q2

REPORT INFORMATION
  Report Type: Spontaneous
  Country: US (occurrence: US)
  Receive Date: 20230324
  Receipt Date: 20240401
  Transmission Date: 20240715
  Serious: No
  Sender: FDA-Public Use
  Company Number: US-SA-SAC20230321001437

PATIENT
  Age: 39 Year
  Sex: Female

DRUGS (1)
  1. AGALSIDASE BETA [Suspect]
     Active Substance: AGALSIDASE BETA
     Dosage: UNK
     Route: 065

REACTIONS (3)
  - Globotriaosylsphingosine increased [Recovering/Resolving]
  - Globotriaosylceramide increased [Recovered/Resolved]
  - Urine analysis abnormal [Recovering/Resolving]

NARRATIVE: CASE EVENT DATE: 20230303
